FAERS Safety Report 8762957 (Version 1)
Quarter: 2012Q4

REPORT INFORMATION
  Report Type: Spontaneous
  Country: US (occurrence: None)
  Receive Date: 20120831
  Receipt Date: 20120831
  Transmission Date: 20130627
  Serious: No
  Sender: FDA-Public Use
  Company Number: None

PATIENT
  Age: 80 Year
  Sex: Female

DRUGS (2)
  1. ESTRACE [Suspect]
     Indication: VULVOVAGINAL ATROPHY
     Dosage: 1 6m 2-3 xwk vaginal
     Route: 067
     Dates: start: 20120804
  2. ESTRACE [Suspect]
     Dosage: 1 6m 2-3 xwk vaginal
     Route: 067
     Dates: start: 20120804

REACTIONS (1)
  - Urticaria [None]
